FAERS Safety Report 5002669-X (Version None)
Quarter: 2006Q2

REPORT INFORMATION
  Report Type: 
  Country: None (occurrence: None)
  Receive Date: 20060510
  Receipt Date: 20060426
  Transmission Date: 20061013
  Serious: No
  Sender: FDA-Public Use
  Company Number: RS005976-J

PATIENT
  Age: 57 Year
  Sex: Male

DRUGS (3)
  1. RABEPRAZOLE SODIUM [Suspect]
     Dosage: 10 MG, 1 IN 1 D, ORAL
     Route: 048
  2. CILOSTAZOL [Suspect]
     Indication: CEREBRAL INFARCTION
     Dosage: 200 MG, 1 IN 1 D, ORAL
     Route: 048
     Dates: start: 20040714, end: 20050222
  3. CILOSTAZOL [Suspect]
     Indication: PROPHYLAXIS
     Dosage: 200 MG, 1 IN 1 D, ORAL
     Route: 048
     Dates: start: 20040714, end: 20050222

REACTIONS (10)
  - ASTHENIA [None]
  - CHEST DISCOMFORT [None]
  - DIZZINESS [None]
  - DRUG INTERACTION [None]
  - LACUNAR INFARCTION [None]
  - PALPITATIONS [None]
  - SHOCK [None]
  - SUPRAVENTRICULAR TACHYCARDIA [None]
  - TRANSIENT ISCHAEMIC ATTACK [None]
  - VENTRICULAR EXTRASYSTOLES [None]
